FAERS Safety Report 17457192 (Version 3)
Quarter: 2020Q3

REPORT INFORMATION
  Report Type: Report from Study
  Country: None (occurrence: IL)
  Receive Date: 20200225
  Receipt Date: 20200815
  Transmission Date: 20201102
  Serious: Yes (Life-Threatening, Hospitalization, Congenital Anomaly, Other)
  Sender: FDA-Public Use
  Company Number: IL-ABBVIE-20K-082-3255191-00

PATIENT
  Age: 77 Year
  Sex: Female
  Weight: 68 kg

DRUGS (17)
  1. AZACITIDINE. [Suspect]
     Active Substance: AZACITIDINE
     Route: 059
     Dates: start: 20200419, end: 20200427
  2. BROTIZOLAM [Concomitant]
     Active Substance: BROTIZOLAM
     Indication: INSOMNIA
     Dates: start: 20200204, end: 20200207
  3. AZACITIDINE. [Suspect]
     Active Substance: AZACITIDINE
     Route: 059
     Dates: start: 20200211, end: 20200314
  4. ANTROLIN [Concomitant]
     Indication: ANAL FISSURE
     Dates: start: 20191024
  5. LYRICA [Concomitant]
     Active Substance: PREGABALIN
     Indication: NEUROPATHY PERIPHERAL
  6. VENETOCLAX. [Suspect]
     Active Substance: VENETOCLAX
     Route: 048
     Dates: start: 20200203, end: 20200615
  7. AZACITIDINE. [Suspect]
     Active Substance: AZACITIDINE
     Route: 059
     Dates: start: 20200315, end: 20200323
  8. AZACITIDINE. [Suspect]
     Active Substance: AZACITIDINE
     Route: 059
     Dates: start: 20200607, end: 20200615
  9. ALLORIL [Concomitant]
     Active Substance: ALLOPURINOL
     Indication: PROPHYLAXIS
     Dates: start: 20191229
  10. VENETOCLAX. [Suspect]
     Active Substance: VENETOCLAX
     Indication: ACUTE MYELOID LEUKAEMIA
     Route: 048
     Dates: start: 20191229, end: 20191229
  11. AZACITIDINE. [Suspect]
     Active Substance: AZACITIDINE
     Indication: ACUTE MYELOID LEUKAEMIA
     Route: 058
     Dates: start: 20191229, end: 20200202
  12. VENETOCLAX. [Suspect]
     Active Substance: VENETOCLAX
     Route: 048
     Dates: start: 20191231, end: 20200202
  13. AZACITIDINE. [Suspect]
     Active Substance: AZACITIDINE
     Route: 059
     Dates: start: 20200607, end: 20200615
  14. AZACITIDINE. [Suspect]
     Active Substance: AZACITIDINE
     Route: 059
     Dates: start: 2020
  15. CLOBETASOL [Concomitant]
     Active Substance: CLOBETASOL
     Indication: SKIN DISORDER
  16. VENETOCLAX. [Suspect]
     Active Substance: VENETOCLAX
     Route: 048
     Dates: start: 20191230, end: 20191230
  17. BELVIQ [Concomitant]
     Active Substance: LORCASERIN HYDROCHLORIDE
     Indication: WEIGHT CONTROL

REACTIONS (5)
  - Nausea [Recovered/Resolved]
  - Bacteraemia [Recovered/Resolved]
  - Respiratory failure [Recovered/Resolved]
  - Pulmonary oedema [Unknown]
  - Neutropenia [Unknown]

NARRATIVE: CASE EVENT DATE: 20191230
